FAERS Safety Report 7504129-0 (Version None)
Quarter: 2011Q2

REPORT INFORMATION
  Report Type: 
  Country: None (occurrence: None)
  Receive Date: 20110401
  Receipt Date: 20110208
  Transmission Date: 20111010
  Serious: No
  Sender: FDA-Public Use
  Company Number: US-004694

PATIENT
  Sex: Male
  Weight: 86.1834 kg

DRUGS (8)
  1. FISH OIL [Concomitant]
  2. FIRMAGON [Suspect]
     Indication: PROSTATE CANCER
     Dosage: 240 MG 1X SUBCUTANEOUS
     Route: 058
     Dates: start: 20110114
  3. TOPROL-XL [Concomitant]
  4. ASPIRIN [Concomitant]
  5. HYTRIN [Concomitant]
  6. ALLOPURINOL [Concomitant]
  7. NORVASC [Concomitant]
  8. FLOMAX [Concomitant]

REACTIONS (6)
  - INJECTION SITE PAIN [None]
  - HYPERHIDROSIS [None]
  - INJECTION SITE INDURATION [None]
  - INJECTION SITE ERYTHEMA [None]
  - FEELING HOT [None]
  - HOT FLUSH [None]
